FAERS Safety Report 18965500 (Version 1)
Quarter: 2021Q1

REPORT INFORMATION
  Report Type: Spontaneous
  Country: FR (occurrence: FR)
  Receive Date: 20210303
  Receipt Date: 20210303
  Transmission Date: 20210420
  Serious: Yes (Life-Threatening)
  Sender: FDA-Public Use
  Company Number: FR-TEVA-2021-FR-1885124

PATIENT
  Age: 71 Year
  Sex: Male
  Weight: 77 kg

DRUGS (6)
  1. TEMESTA (LORAZEPAM) [Suspect]
     Active Substance: LORAZEPAM
     Indication: AGITATION
     Dosage: 0.5 CP X3 / D FROM 12/15/2020 TO 01/29/2021 THEN 0.5 CP X2 / D SINCE 01/30/2021, UNIT DOSE: 2.5MG
     Route: 048
     Dates: start: 20201215, end: 20210126
  2. SERTRALINE [Concomitant]
     Active Substance: SERTRALINE HYDROCHLORIDE
     Dosage: 100MG
     Route: 048
     Dates: start: 20201029
  3. CLOZAPINE. [Suspect]
     Active Substance: CLOZAPINE
     Indication: NEUROPSYCHIATRIC SYMPTOMS
     Dosage: 0.5 CP EVENING FROM 01/15/2021 TO 01/18/2021 THEN 0.5 CP MORNING AND EVENING FROM 01/18/2021 TO 01/2
     Route: 048
     Dates: start: 20210115
  4. PARACETAMOL [Concomitant]
     Active Substance: ACETAMINOPHEN
     Dosage: 3000MG
     Route: 048
     Dates: start: 20201029
  5. MACROGOL 3350 [Concomitant]
     Active Substance: POLYETHYLENE GLYCOL 3350
     Dosage: 1DF
     Route: 048
     Dates: start: 20210113
  6. PREGABALINE [Concomitant]
     Active Substance: PREGABALIN
     Dosage: 450MG
     Route: 048
     Dates: start: 20201231

REACTIONS (2)
  - Fall [Unknown]
  - Seizure [Recovered/Resolved]

NARRATIVE: CASE EVENT DATE: 20210115
